FAERS Safety Report 8188438 (Version 2)
Quarter: 2013Q1

REPORT INFORMATION
  Report Type: Spontaneous
  Country: US (occurrence: US)
  Receive Date: 20111019
  Receipt Date: 20130108
  Transmission Date: 20140127
  Serious: Yes (Other)
  Sender: FDA-Public Use
  Company Number: US-PAR PHARMACEUTICAL, INC-2011SCPR003287

PATIENT
  Sex: 0

DRUGS (11)
  1. TRAMADOL [Suspect]
     Indication: BACK PAIN
     Dosage: 1 TABLET EVERY 4-6 HOURS AS NEEDED
     Route: 065
  2. TRAMADOL [Interacting]
     Dosage: UNK UNK, IN THE EVENING
     Route: 065
  3. PROPRANOLOL HCL + HYDROCHLOROTHIAZIDE [Suspect]
     Indication: PORTAL HYPERTENSION
     Dosage: 1 TABLET, QD
     Route: 065
  4. PROPRANOLOL HCL + HYDROCHLOROTHIAZIDE [Suspect]
     Dosage: 1 DF, BID
     Route: 065
  5. ALCOHOL [Interacting]
     Indication: PRODUCT USED FOR UNKNOWN INDICATION
     Dosage: UNK, UNKNOWN
     Route: 065
  6. CANNABIS SATIVA SUBSP. INDICA TOP [Suspect]
     Indication: PRODUCT USED FOR UNKNOWN INDICATION
     Dosage: 3 CIGARETTES PER DAY
     Route: 065
  7. SPIRONOLACTONE [Suspect]
     Indication: ALCOHOLIC LIVER DISEASE
     Dosage: 1 TABLET, DAILY
     Route: 065
  8. ASPIRIN [Suspect]
     Indication: HEADACHE
     Dosage: 325 MG, UNKNOWN
     Route: 065
  9. TIOTROPIUM [Concomitant]
     Indication: CHRONIC OBSTRUCTIVE PULMONARY DISEASE
     Dosage: 1 CAPSULE (CONTENT OF), QD
     Route: 045
  10. MULTIVITAMIN                       /00097801/ [Concomitant]
     Indication: PRODUCT USED FOR UNKNOWN INDICATION
     Dosage: 1 DF, QD
     Route: 065
  11. VITAMIN C                          /00008001/ [Concomitant]
     Indication: PRODUCT USED FOR UNKNOWN INDICATION
     Dosage: 1 DF, QD
     Route: 065

REACTIONS (4)
  - Loss of consciousness [Recovering/Resolving]
  - Medication error [Recovered/Resolved]
  - Alcohol interaction [Unknown]
  - Treatment noncompliance [Recovering/Resolving]
